FAERS Safety Report 5974205-2 (Version None)
Quarter: 2008Q4

REPORT INFORMATION
  Report Type: 
  Country: None (occurrence: None)
  Receive Date: 20081125
  Receipt Date: 20081110
  Transmission Date: 20090506
  Serious: Yes (Death, Hospitalization, Other)
  Sender: FDA-Public Use
  Company Number: 54282

PATIENT
  Age: 67 Year
  Sex: Male

DRUGS (3)
  1. CISPLATIN [Suspect]
     Indication: ADENOCARCINOMA
  2. CISPLATIN [Suspect]
     Indication: METASTASIS
  3. CISPLATIN [Suspect]
     Indication: SQUAMOUS CELL CARCINOMA

REACTIONS (9)
  - COUGH [None]
  - DYSPNOEA [None]
  - GENERAL PHYSICAL HEALTH DETERIORATION [None]
  - HAEMOPTYSIS [None]
  - LUNG INFECTION [None]
  - MALIGNANT NEOPLASM PROGRESSION [None]
  - NAUSEA [None]
  - STRONGYLOIDIASIS [None]
  - VOMITING [None]
